FAERS Safety Report 4423618-9 (Version None)
Quarter: 2004Q3

REPORT INFORMATION
  Report Type: 
  Country: None (occurrence: None)
  Receive Date: 20040719
  Receipt Date: 20040518
  Transmission Date: 20050211
  Serious: Yes (Hospitalization)
  Sender: FDA-Public Use
  Company Number: A03200401585

PATIENT
  Age: 84 Year
  Sex: Male

DRUGS (7)
  1. UROXATRAL [Suspect]
     Indication: BENIGN PROSTATIC HYPERPLASIA
     Dosage: 10 MG OD; ORAL
     Route: 048
     Dates: start: 20040506, end: 20040506
  2. CAPTOPRIL [Concomitant]
  3. HYDROCHLOROTHIAZIDE [Concomitant]
  4. AMIODARONE HCL [Concomitant]
  5. ATORVASTATIN [Concomitant]
  6. OXYBUTYNIN CHLORIDE [Concomitant]
  7. MULTI-VITAMIN [Concomitant]

REACTIONS (2)
  - LOSS OF CONSCIOUSNESS [None]
  - ORTHOSTATIC HYPOTENSION [None]
